FAERS Safety Report 23814191 (Version 1)
Quarter: 2024Q2

REPORT INFORMATION
  Report Type: Spontaneous
  Country: US (occurrence: US)
  Receive Date: 20240503
  Receipt Date: 20240503
  Transmission Date: 20240716
  Serious: Yes (Other)
  Sender: FDA-Public Use
  Company Number: US-ABBVIE-5740216

PATIENT
  Sex: Female

DRUGS (1)
  1. ARMOUR THYROID [Suspect]
     Active Substance: THYROID, PORCINE
     Indication: Autoimmune thyroiditis
     Dosage: FORM STRENGTH: 15 MG
     Route: 048

REACTIONS (14)
  - Mammoplasty [Unknown]
  - Urinary tract infection [Unknown]
  - Weight increased [Unknown]
  - Thyroid disorder [Unknown]
  - Back pain [Unknown]
  - Insomnia [Unknown]
  - Abdominal distension [Unknown]
  - Spinal disorder [Unknown]
  - Cognitive disorder [Unknown]
  - Malaise [Unknown]
  - Uterine prolapse [Unknown]
  - Device breakage [Unknown]
  - Pain [Unknown]
  - Unevaluable event [Unknown]

NARRATIVE: CASE EVENT DATE: 20240401
